FAERS Safety Report 16684859 (Version 1)
Quarter: 2019Q3

REPORT INFORMATION
  Report Type: Spontaneous
  Country: BE (occurrence: BE)
  Receive Date: 20190808
  Receipt Date: 20190808
  Transmission Date: 20191004
  Serious: Yes (Life-Threatening, Hospitalization)
  Sender: FDA-Public Use
  Company Number: BE-MYLANLABS-2019M1074139

PATIENT
  Age: 79 Year
  Sex: Male
  Weight: 76 kg

DRUGS (9)
  1. CARDIOASPIRINE [Concomitant]
     Active Substance: ASPIRIN
     Dosage: 1 COMP 1X/JOUR
     Route: 048
  2. ALPHAGAN P [Concomitant]
     Active Substance: BRIMONIDINE TARTRATE
     Dosage: 1 GOUTTE 2X/JOUR (MATIN ET SOIR) DANS CHAQUE ?IL.
     Route: 047
  3. ULTRA-MG [Concomitant]
     Active Substance: MAGNESIUM GLUCONATE
     Dosage: 1 SACHET 1X/JOUR
     Route: 048
  4. PANTOMED                           /00178901/ [Concomitant]
     Active Substance: DEXPANTHENOL
     Dosage: 1 COMP 1X/JOUR LE MATIN
     Route: 048
  5. CRESTOR [Concomitant]
     Active Substance: ROSUVASTATIN CALCIUM
     Dosage: 1 COMP 1JOUR/2 LE SOIR
     Route: 048
  6. ALLOPURINOL. [Concomitant]
     Active Substance: ALLOPURINOL
     Dosage: 1 COMPRIM? 2X/JOUR (MATIN ET SOIR)
     Route: 048
  7. TIMABAK [Concomitant]
     Dosage: 1 GOUTTE 2X/JOUR (MATIN ET SOIR) DANS CHAQUE ?IL.
     Route: 047
  8. BICLAR UNO (CLARITHROMYCIN) [Suspect]
     Active Substance: CLARITHROMYCIN
     Indication: BRONCHITIS BACTERIAL
     Dosage: 1 GRAM, QD
     Route: 048
     Dates: start: 20190131, end: 20190205
  9. COVERSYL PLUS                      /01421201/ [Concomitant]
     Active Substance: INDAPAMIDE\PERINDOPRIL ERBUMINE
     Dosage: 1 COMP 1X/JOUR LE MATIN
     Route: 048

REACTIONS (5)
  - Respiratory failure [Recovered/Resolved]
  - Dyspnoea [Recovered/Resolved]
  - Hypoxia [Recovered/Resolved]
  - Tachycardia [Recovered/Resolved]
  - Hypercapnia [Recovered/Resolved]

NARRATIVE: CASE EVENT DATE: 20190205
